FAERS Safety Report 9143736 (Version 1)
Quarter: 2013Q1

REPORT INFORMATION
  Report Type: Spontaneous
  Country: US (occurrence: US)
  Receive Date: 20130306
  Receipt Date: 20130306
  Transmission Date: 20140127
  Serious: Yes (Hospitalization)
  Sender: FDA-Public Use
  Company Number: US-GILEAD-2013-0070748

PATIENT
  Sex: Female

DRUGS (1)
  1. LETAIRIS [Suspect]
     Indication: PULMONARY ARTERIAL HYPERTENSION
     Dosage: 10 MG, QD
     Route: 048
     Dates: start: 20121204, end: 20130222

REACTIONS (8)
  - Pneumonia [Unknown]
  - Diarrhoea [Unknown]
  - Hypotension [Unknown]
  - White blood cell count increased [Unknown]
  - Body temperature decreased [Unknown]
  - Feeling cold [Unknown]
  - Abdominal pain lower [Unknown]
  - Nausea [Unknown]
